FAERS Safety Report 9179832 (Version 5)
Quarter: 2013Q2

REPORT INFORMATION
  Report Type: Report from Study
  Country: US (occurrence: US)
  Receive Date: 20130321
  Receipt Date: 20130624
  Transmission Date: 20140414
  Serious: Yes (Hospitalization, Other)
  Sender: FDA-Public Use
  Company Number: US-ABBOTT-13P-163-1064582-00

PATIENT
  Age: 48 Year
  Sex: Female
  Weight: 91.25 kg

DRUGS (2)
  1. HUMIRA [Suspect]
     Indication: CROHN^S DISEASE
     Dates: start: 20121211, end: 20130313
  2. APRISO [Suspect]
     Indication: CROHN^S DISEASE
     Dates: start: 20130215

REACTIONS (8)
  - Acute febrile neutrophilic dermatosis [Not Recovered/Not Resolved]
  - Pancreatitis [Not Recovered/Not Resolved]
  - Breast cancer [Not Recovered/Not Resolved]
  - Burnout syndrome [Unknown]
  - Fatigue [Unknown]
  - Erythema nodosum [Not Recovered/Not Resolved]
  - Pain in extremity [Not Recovered/Not Resolved]
  - Breast cancer metastatic [Not Recovered/Not Resolved]
